FAERS Safety Report 22157743 (Version 2)
Quarter: 2023Q2

REPORT INFORMATION
  Report Type: Spontaneous
  Country: US (occurrence: US)
  Receive Date: 20230330
  Receipt Date: 20230413
  Transmission Date: 20230722
  Serious: Yes (Death, Hospitalization, Other)
  Sender: FDA-Public Use
  Company Number: US-TEVA-2023-US-2870155

PATIENT
  Age: 37 Year
  Sex: Male

DRUGS (17)
  1. CAPECITABINE [Suspect]
     Active Substance: CAPECITABINE
     Indication: Pancreatic neuroendocrine tumour metastatic
     Route: 065
  2. CISPLATIN [Suspect]
     Active Substance: CISPLATIN
     Indication: Pancreatic neuroendocrine tumour metastatic
     Route: 065
  3. SUNITINIB [Suspect]
     Active Substance: SUNITINIB
     Indication: Pancreatic neuroendocrine tumour metastatic
     Route: 065
  4. EVEROLIMUS [Suspect]
     Active Substance: EVEROLIMUS
     Indication: Pancreatic neuroendocrine tumour metastatic
     Route: 065
  5. ETOPOSIDE [Suspect]
     Active Substance: ETOPOSIDE
     Indication: Pancreatic neuroendocrine tumour metastatic
     Route: 065
  6. FLUOROURACIL [Suspect]
     Active Substance: FLUOROURACIL
     Indication: Insulinoma
     Dosage: FOLFIRI REGIMEN
     Route: 065
  7. LEUCOVORIN [Suspect]
     Active Substance: LEUCOVORIN
     Indication: Insulinoma
     Dosage: FOLFIRI REGIMEN
     Route: 065
  8. IRINOTECAN [Suspect]
     Active Substance: IRINOTECAN
     Indication: Insulinoma
     Dosage: FOLFIRI REGIMEN
     Route: 065
  9. DIAZOXIDE [Suspect]
     Active Substance: DIAZOXIDE
     Indication: Hypoglycaemia
     Dosage: UPTITRATED TO MAXIMUM DAILY DOSE OF 900 MG
     Route: 065
  10. DIAZOXIDE [Suspect]
     Active Substance: DIAZOXIDE
     Indication: Insulinoma
     Dosage: 600 MILLIGRAM DAILY; 200 MG THRICE DAILY
     Route: 065
  11. OCTREOTIDE [Suspect]
     Active Substance: OCTREOTIDE
     Indication: Pancreatic neuroendocrine tumour metastatic
     Route: 065
  12. TEMOZOLOMIDE [Suspect]
     Active Substance: TEMOZOLOMIDE
     Indication: Pancreatic neuroendocrine tumour metastatic
     Route: 065
  13. DEXTROSE [Suspect]
     Active Substance: DEXTROSE\DEXTROSE MONOHYDRATE
     Indication: Hypoglycaemia
     Dosage: 225 ML/HR
     Route: 042
  14. DEXTROSE [Suspect]
     Active Substance: DEXTROSE\DEXTROSE MONOHYDRATE
     Indication: Insulinoma
     Dosage: 140 ML/HR THROUGH THE CENTRAL LINE WITH FREQUENT ADDITIONAL PUSHES.
     Route: 042
  15. PREDNISONE [Concomitant]
     Active Substance: PREDNISONE
     Indication: Insulinoma
     Dosage: 60 MILLIGRAM DAILY; ONCE A DAY
     Route: 048
  16. PREDNISONE [Concomitant]
     Active Substance: PREDNISONE
     Indication: Insulinoma
     Route: 065
  17. LANREOTIDE [Concomitant]
     Active Substance: LANREOTIDE
     Indication: Insulinoma
     Route: 065

REACTIONS (7)
  - Insulinoma [Fatal]
  - Cardiac failure congestive [Unknown]
  - Generalised oedema [Unknown]
  - Right ventricular dysfunction [Unknown]
  - Systolic dysfunction [Unknown]
  - Tumour lysis syndrome [Recovered/Resolved]
  - Drug ineffective [Unknown]
